FAERS Safety Report 5386839-7 (Version None)
Quarter: 2007Q3

REPORT INFORMATION
  Report Type: 
  Country: None (occurrence: None)
  Receive Date: 20070713
  Receipt Date: 20070712
  Transmission Date: 20080115
  Serious: Yes (Hospitalization)
  Sender: FDA-Public Use
  Company Number: AR-BOEHRINGER INGELHEIM PHARMACEUTICALS, INC.-2007-BP-15475RA

PATIENT
  Sex: Female
  Weight: 50.5 kg

DRUGS (3)
  1. TIPRANAVIR / RITONAVIR CAPSULES, SOFTGELATIN [Suspect]
     Indication: HIV INFECTION
     Dosage: TPV/RTV 1000/400 MG
     Route: 048
     Dates: start: 20040419, end: 20070620
  2. ABACAVIR [Concomitant]
     Indication: HIV INFECTION
     Route: 048
     Dates: start: 20040419, end: 20070620
  3. DIDANOSINE [Concomitant]
     Indication: HIV INFECTION
     Route: 048
     Dates: start: 20040419, end: 20070620

REACTIONS (1)
  - ABORTION SPONTANEOUS [None]
